FAERS Safety Report 18243100 (Version 2)
Quarter: 2020Q3

REPORT INFORMATION
  Report Type: Spontaneous
  Country: US (occurrence: US)
  Receive Date: 20200908
  Receipt Date: 20200922
  Transmission Date: 20201103
  Serious: Yes (Other)
  Sender: FDA-Public Use
  Company Number: US-009507513-2009USA001769

PATIENT
  Age: 72 Year
  Sex: Female

DRUGS (1)
  1. KEYTRUDA [Suspect]
     Active Substance: PEMBROLIZUMAB
     Indication: SQUAMOUS CELL CARCINOMA OF SKIN
     Dosage: 3 CYCLES

REACTIONS (3)
  - Horner^s syndrome [Recovering/Resolving]
  - Dry eye [Recovering/Resolving]
  - Immune-mediated enterocolitis [Not Recovered/Not Resolved]
